FAERS Safety Report 4296709-3 (Version None)
Quarter: 2004Q1

REPORT INFORMATION
  Report Type: 
  Country: None (occurrence: None)
  Receive Date: 20040217
  Receipt Date: 20030609
  Transmission Date: 20041129
  Serious: Yes (Hospitalization, Disabling)
  Sender: FDA-Public Use
  Company Number: WAES 0306USA01133

PATIENT
  Age: 56 Year
  Sex: Male
  Weight: 91 kg

DRUGS (17)
  1. [THERAPY UNSPECIFIED] [Concomitant]
     Dates: start: 19990101
  2. NORCO [Concomitant]
  3. ATENOLOL [Concomitant]
     Dates: start: 19970401
  4. TENORMIN [Concomitant]
  5. CELEBREX [Concomitant]
  6. CHLORTHALIDONE [Concomitant]
  7. HYGROTON [Concomitant]
     Dates: end: 20000215
  8. CYCLOBENZAPRINE HYDROCHLORIDE [Concomitant]
  9. CARDIZEM [Concomitant]
     Dates: start: 19990101
  10. PROPECIA [Concomitant]
  11. GLUCOVANCE [Concomitant]
     Dates: start: 20000101
  12. HYDROCODONE HYDROCHLORIDE [Concomitant]
  13. VIOXX [Suspect]
     Indication: BACK DISORDER
     Route: 048
     Dates: start: 19991122
  14. VIOXX [Suspect]
     Indication: PAIN
     Route: 048
     Dates: start: 19991122
  15. AVANDIA [Concomitant]
  16. ULTRAM [Concomitant]
  17. DIOVAN [Concomitant]
     Dates: start: 20000801, end: 20010501

REACTIONS (22)
  - ACUTE MYOCARDIAL INFARCTION [None]
  - CARDIAC VALVE DISEASE [None]
  - CARDIOMEGALY [None]
  - CORONARY ARTERY DISEASE [None]
  - CORONARY ARTERY STENOSIS [None]
  - DIABETES MELLITUS [None]
  - DIABETES MELLITUS NON-INSULIN-DEPENDENT [None]
  - ELECTROCARDIOGRAM ST SEGMENT DEPRESSION [None]
  - EMOTIONAL DISTRESS [None]
  - ESSENTIAL HYPERTENSION [None]
  - GASTROOESOPHAGEAL REFLUX DISEASE [None]
  - HYPERCHOLESTEROLAEMIA [None]
  - HYPOXIA [None]
  - INJURY [None]
  - INSOMNIA [None]
  - MUSCLE STRAIN [None]
  - NERVOUSNESS [None]
  - PLATELET COUNT DECREASED [None]
  - PLEURAL EFFUSION [None]
  - QUADRUPLE VESSEL BYPASS GRAFT [None]
  - RESPIRATORY FAILURE [None]
  - THROMBOSIS [None]
